FAERS Safety Report 5208064-2 (Version None)
Quarter: 2007Q1

REPORT INFORMATION
  Report Type: 
  Country: None (occurrence: None)
  Receive Date: 20070110
  Receipt Date: 20061227
  Transmission Date: 20070707
  Serious: Yes (Hospitalization)
  Sender: FDA-Public Use
  Company Number: A-JP2006-13829

PATIENT
  Age: 36 Year
  Sex: Male
  Weight: 58 kg

DRUGS (11)
  1. TRACLEER [Suspect]
     Indication: PULMONARY HYPERTENSION
     Dosage: 31.2 MG, BID, ORAL, 62 MG, BID, ORAL, 62.5 MG, TID, ORAL, 125 MG, BID; ORAL
     Route: 048
     Dates: start: 20060623, end: 20060629
  2. TRACLEER [Suspect]
     Indication: PULMONARY HYPERTENSION
     Dosage: 31.2 MG, BID, ORAL, 62 MG, BID, ORAL, 62.5 MG, TID, ORAL, 125 MG, BID; ORAL
     Route: 048
     Dates: start: 20060630, end: 20060725
  3. TRACLEER [Suspect]
     Indication: PULMONARY HYPERTENSION
     Dosage: 31.2 MG, BID, ORAL, 62 MG, BID, ORAL, 62.5 MG, TID, ORAL, 125 MG, BID; ORAL
     Route: 048
     Dates: start: 20060726, end: 20060807
  4. TRACLEER [Suspect]
     Indication: PULMONARY HYPERTENSION
     Dosage: 31.2 MG, BID, ORAL, 62 MG, BID, ORAL, 62.5 MG, TID, ORAL, 125 MG, BID; ORAL
     Route: 048
     Dates: start: 20060808, end: 20061106
  5. WARFARIN POTASSIUM (WARFARIIN POTASSIUM) [Suspect]
  6. ASPIRIN [Suspect]
  7. BERAPROST SODIUM [Concomitant]
  8. FUROSEMIDE (FUROSEMIDE SODIUM) [Concomitant]
  9. SPIRONOLACTONE [Concomitant]
  10. MECOBALAMIN [Concomitant]
  11. BIFDOBACTERIUM BIFIDUM [Concomitant]

REACTIONS (5)
  - ANGIOPATHY [None]
  - CARDIOVASCULAR DISORDER [None]
  - HAEMOPTYSIS [None]
  - PULMONARY HAEMORRHAGE [None]
  - RIGHT VENTRICULAR FAILURE [None]
